FAERS Safety Report 24626829 (Version 1)
Quarter: 2024Q4

REPORT INFORMATION
  Report Type: Spontaneous
  Country: US (occurrence: US)
  Receive Date: 20241115
  Receipt Date: 20241115
  Transmission Date: 20250115
  Serious: No
  Sender: NOVO NORDISK
  Company Number: US-NOVOPROD-1214526

PATIENT
  Age: 69 Year
  Sex: Male

DRUGS (1)
  1. NOVOLOG [Suspect]
     Active Substance: INSULIN ASPART
     Indication: Type 2 diabetes mellitus
     Dosage: 24 IU, QD
     Route: 058
     Dates: start: 20240404

REACTIONS (3)
  - Vomiting [Not Recovered/Not Resolved]
  - Blood glucose fluctuation [Not Recovered/Not Resolved]
  - Incorrect dose administered [Not Recovered/Not Resolved]

NARRATIVE: CASE EVENT DATE: 20240420
